FAERS Safety Report 9282783 (Version 6)
Quarter: 2013Q4

REPORT INFORMATION
  Report Type: Report from Study
  Country: US (occurrence: US)
  Receive Date: 20130510
  Receipt Date: 20131009
  Transmission Date: 20140711
  Serious: Yes (Other)
  Sender: FDA-Public Use
  Company Number: PHEH2013US010171

PATIENT
  Age: 57 Year
  Sex: Female
  Weight: 63.49 kg

DRUGS (5)
  1. GILENYA [Suspect]
     Indication: RELAPSING-REMITTING MULTIPLE SCLEROSIS
     Dosage: 0.5 MG, QD
     Route: 048
     Dates: start: 201209, end: 201302
  2. GILENYA [Suspect]
     Dosage: 0.5 MG, QD
     Route: 048
     Dates: start: 201303, end: 201304
  3. TIZANIDINE [Concomitant]
     Indication: MUSCLE SPASTICITY
     Dosage: 4 MG, QID
  4. TIZANIDINE [Concomitant]
     Dosage: 2 MG, QD
     Dates: start: 20130320
  5. FOSAMAX [Concomitant]
     Indication: OSTEOPOROSIS
     Dosage: 1 G, QW

REACTIONS (5)
  - Liver injury [Recovered/Resolved]
  - Hepatic enzyme increased [Recovered/Resolved]
  - Aspartate aminotransferase increased [Recovered/Resolved]
  - Alanine aminotransferase increased [Recovered/Resolved]
  - Drug intolerance [Unknown]
